FAERS Safety Report 6614447-6 (Version None)
Quarter: 2010Q1

REPORT INFORMATION
  Report Type: 
  Country: None (occurrence: None)
  Receive Date: 20100303
  Receipt Date: 20100303
  Transmission Date: 20100710
  Serious: No
  Sender: FDA-Public Use
  Company Number: None

PATIENT
  Age: 38 Year
  Sex: Female

DRUGS (5)
  1. GEODON [Suspect]
     Dates: start: 20091125, end: 20091201
  2. VALIUM [Concomitant]
  3. LAMICTAL [Concomitant]
  4. RISPERIDONE [Concomitant]
  5. BENADRYL [Concomitant]

REACTIONS (2)
  - DYSKINESIA [None]
  - TREMOR [None]
